FAERS Safety Report 23421529 (Version 1)
Quarter: 2024Q1

REPORT INFORMATION
  Report Type: Spontaneous
  Country: US (occurrence: None)
  Receive Date: 20240119
  Receipt Date: 20240119
  Transmission Date: 20240410
  Serious: Yes (Other)
  Sender: FDA-Public Use
  Company Number: US-ROCHE-3489383

PATIENT
  Age: 74 Year
  Sex: Male
  Weight: 80.358 kg

DRUGS (18)
  1. VABYSMO [Suspect]
     Active Substance: FARICIMAB\FARICIMAB-SVOA
     Indication: Neovascular age-related macular degeneration
     Route: 050
     Dates: start: 2022
  2. VABYSMO [Suspect]
     Active Substance: FARICIMAB\FARICIMAB-SVOA
     Dosage: INJECTION IN BOTH EYES AT SAME VISIT
     Route: 050
  3. VIAGRA [Suspect]
     Active Substance: SILDENAFIL CITRATE
     Indication: Erectile dysfunction
     Route: 048
  4. AVASTIN [Suspect]
     Active Substance: BEVACIZUMAB
     Indication: Neovascular age-related macular degeneration
     Route: 065
     Dates: start: 2009
  5. EYLEA [Suspect]
     Active Substance: AFLIBERCEPT
     Indication: Product used for unknown indication
     Route: 065
  6. OXYCODONE [Concomitant]
     Active Substance: OXYCODONE
     Indication: Back pain
     Dosage: 15MG THREE TIMES DAILY, 5 MG 1.5 PILLS AT BEDTIME.
     Route: 048
  7. GABAPENTIN [Concomitant]
     Active Substance: GABAPENTIN
     Indication: Restless legs syndrome
     Dosage: 600MG TWICE DAI
  8. SOMA [Concomitant]
     Active Substance: CARISOPRODOL
     Dosage: 350MG THREE TIMES DAILY AS
  9. TRAZODONE [Concomitant]
     Active Substance: TRAZODONE HYDROCHLORIDE
     Dosage: 150MG FOR SLEEP
  10. GEMTESA [Concomitant]
     Active Substance: VIBEGRON
     Dosage: 75MG ONCE DAILY
  11. OMEPRAZOLE [Concomitant]
     Active Substance: OMEPRAZOLE
     Dosage: 40MG ONCE DAILY
  12. BUPROPION HYDROCHLORIDE [Concomitant]
     Active Substance: BUPROPION HYDROCHLORIDE
     Dosage: 200MG ONCE DAILY
  13. ATORVASTATIN [Concomitant]
     Active Substance: ATORVASTATIN
     Indication: Blood cholesterol increased
     Dosage: 20MG ONCE DAILY
  14. MELATONIN [Concomitant]
     Active Substance: MELATONIN
     Dosage: 20MG EVERY NIGHT
  15. VIAGRA [Concomitant]
     Active Substance: SILDENAFIL CITRATE
     Dosage: 100MG AS NEEDED
  16. FLUTICASONE [Concomitant]
     Active Substance: FLUTICASONE
     Indication: Nasal congestion
     Dosage: NASAL SPRAY 1 SPRAY IN EACH NOSTRIL ONCE DAILY.
  17. ASPIRIN [Concomitant]
     Active Substance: ASPIRIN
     Dosage: DAILY 325MG EACH TABLET
  18. FOLIC ACID [Concomitant]
     Active Substance: FOLIC ACID
     Dosage: 800MG AS NEEDED

REACTIONS (7)
  - Vision blurred [Not Recovered/Not Resolved]
  - Eye pain [Recovered/Resolved]
  - Lung neoplasm malignant [Unknown]
  - Nasopharyngitis [Recovering/Resolving]
  - Squamous cell carcinoma [Recovered/Resolved]
  - Off label use [Unknown]
  - Nasal congestion [Not Recovered/Not Resolved]

NARRATIVE: CASE EVENT DATE: 20220101
